FAERS Safety Report 4751697-8 (Version None)
Quarter: 2005Q3

REPORT INFORMATION
  Report Type: 
  Country: None (occurrence: None)
  Receive Date: 20050822
  Receipt Date: 20050822
  Transmission Date: 20060218
  Serious: Yes (Life-Threatening, Disabling)
  Sender: FDA-Public Use
  Company Number: None

PATIENT
  Age: 39 Year
  Sex: Female
  Weight: 71.2147 kg

DRUGS (3)
  1. PAXIL CR [Suspect]
     Indication: AGORAPHOBIA
     Dosage: 1 TABLET ONCE DAILY PO
     Route: 048
     Dates: start: 20041101, end: 20050504
  2. PAXIL CR [Suspect]
     Indication: ANXIETY
     Dosage: 1 TABLET ONCE DAILY PO
     Route: 048
     Dates: start: 20041101, end: 20050504
  3. PAXIL CR [Suspect]
     Indication: PANIC DISORDER
     Dosage: 1 TABLET ONCE DAILY PO
     Route: 048
     Dates: start: 20041101, end: 20050504

REACTIONS (25)
  - ABNORMAL BEHAVIOUR [None]
  - ABNORMAL SENSATION IN EYE [None]
  - ANGER [None]
  - ASTHENIA [None]
  - BLOOD PRESSURE SYSTOLIC DECREASED [None]
  - CRYING [None]
  - DIARRHOEA [None]
  - DIZZINESS [None]
  - EYE DISORDER [None]
  - FORMICATION [None]
  - HEART RATE DECREASED [None]
  - HYPERACUSIS [None]
  - HYPOAESTHESIA [None]
  - IMPAIRED DRIVING ABILITY [None]
  - INFLUENZA [None]
  - MANIA [None]
  - MOOD SWINGS [None]
  - NAUSEA [None]
  - NERVOUS SYSTEM DISORDER [None]
  - PAIN [None]
  - PARAESTHESIA [None]
  - PHOTOPHOBIA [None]
  - SCREAMING [None]
  - VOMITING [None]
  - WEIGHT INCREASED [None]
